FAERS Safety Report 20224293 (Version 2)
Quarter: 2022Q1

REPORT INFORMATION
  Report Type: Spontaneous
  Country: CN (occurrence: None)
  Receive Date: 20211223
  Receipt Date: 20220104
  Transmission Date: 20220423
  Serious: Yes (Hospitalization)
  Sender: FDA-Public Use
  Company Number: 2021A882661

PATIENT
  Sex: Male
  Weight: 72 kg

DRUGS (1)
  1. IMFINZI [Suspect]
     Active Substance: DURVALUMAB
     Indication: Non-small cell lung cancer stage III
     Dosage: 1000MG/CYCLE.
     Route: 042
     Dates: start: 20210302, end: 20210302

REACTIONS (2)
  - Radiation pneumonitis [Recovering/Resolving]
  - Cough [Recovering/Resolving]
